FAERS Safety Report 8506096-X (Version None)
Quarter: 2012Q3

REPORT INFORMATION
  Report Type: 
  Country: None (occurrence: None)
  Receive Date: 20120712
  Receipt Date: 20120710
  Transmission Date: 20120928
  Serious: Yes (Other)
  Sender: FDA-Public Use
  Company Number: CN-ROCHE-1084672

PATIENT
  Age: 40 Year
  Sex: Male

DRUGS (3)
  1. THYMOPEPTIDE [Concomitant]
     Indication: HEPATITIS B
  2. CHINESE PATENT MEDICINE (UNK INGREDIENTS) [Concomitant]
     Indication: HEPATITIS B
  3. PEGASYS [Suspect]
     Indication: HEPATITIS B
     Route: 058
     Dates: start: 20120114, end: 20120501

REACTIONS (4)
  - PORTAL HYPERTENSION [None]
  - BLOOD TEST ABNORMAL [None]
  - HEPATOSPLENOMEGALY [None]
  - GASTRIC VARICES [None]
